FAERS Safety Report 5655309-0 (Version None)
Quarter: 2008Q1

REPORT INFORMATION
  Report Type: 
  Country: None (occurrence: None)
  Receive Date: 20080307
  Receipt Date: 20080304
  Transmission Date: 20080703
  Serious: Yes (Other)
  Sender: FDA-Public Use
  Company Number: GB-ALLERGAN-0802574US

PATIENT
  Sex: Female

DRUGS (1)
  1. BOTOX [Suspect]
     Indication: SKIN WRINKLING
     Dosage: 65 UNITS, SINGLE
     Route: 030
     Dates: start: 20080209, end: 20080209

REACTIONS (5)
  - DYSPHAGIA [None]
  - EYE SWELLING [None]
  - EYELID PTOSIS [None]
  - HEMIPARESIS [None]
  - MALAISE [None]
